FAERS Safety Report 17604358 (Version 3)
Quarter: 2023Q1

REPORT INFORMATION
  Report Type: Spontaneous
  Country: US (occurrence: US)
  Receive Date: 20200331
  Receipt Date: 20230130
  Transmission Date: 20230418
  Serious: Yes (Hospitalization, Other)
  Sender: FDA-Public Use
  Company Number: US-PFIZER INC-2020131385

PATIENT
  Age: 63 Year
  Sex: Female

DRUGS (3)
  1. XELJANZ XR [Suspect]
     Active Substance: TOFACITINIB CITRATE
     Indication: Rheumatoid arthritis
     Dosage: 11 MG, 1X/DAY
     Route: 048
  2. XELJANZ XR [Suspect]
     Active Substance: TOFACITINIB CITRATE
     Indication: Cyst
  3. XELJANZ XR [Suspect]
     Active Substance: TOFACITINIB CITRATE
     Indication: Osteoarthritis

REACTIONS (20)
  - Pneumonia [Unknown]
  - Pain in extremity [Unknown]
  - Arthralgia [Unknown]
  - Herpes zoster [Unknown]
  - Myalgia [Unknown]
  - Musculoskeletal chest pain [Unknown]
  - Vision blurred [Unknown]
  - Dizziness [Unknown]
  - Dyspnoea [Unknown]
  - Wheezing [Unknown]
  - Fatigue [Unknown]
  - Joint swelling [Unknown]
  - Erythema [Unknown]
  - Musculoskeletal stiffness [Unknown]
  - Muscle fatigue [Unknown]
  - Neck pain [Unknown]
  - Peripheral swelling [Unknown]
  - Joint stiffness [Unknown]
  - Arthropathy [Unknown]
  - Pain [Unknown]
